FAERS Safety Report 8962740 (Version 1)
Quarter: 2012Q4

REPORT INFORMATION
  Report Type: 
  Country: US (occurrence: US)
  Receive Date: 20121213
  Receipt Date: 20121213
  Transmission Date: 20130627
  Serious: No
  Sender: FDA-Public Use
  Company Number: US-PFIZER INC-2012311542

PATIENT
  Age: 66 Year
  Sex: Male
  Weight: 106 kg

DRUGS (16)
  1. SUTENT [Suspect]
     Indication: METASTATIC RENAL CELL CARCINOMA
     Dosage: UNK
     Dates: start: 20120920
  2. HYDROCODONE [Concomitant]
     Indication: ARTHRITIC PAINS
     Dosage: 7.5mg/325mg as needed
  3. COLACE [Concomitant]
     Dosage: UNK
  4. PHILLIPS^ FIBERCAPS [Concomitant]
     Dosage: UNK
  5. OMEPRAZOLE [Concomitant]
     Dosage: UNK
  6. FISH OIL [Concomitant]
     Dosage: 1 g, UNK
  7. TRAZODONE [Concomitant]
     Dosage: 100 mg, HS
  8. ACETYLSALICYLIC ACID [Concomitant]
     Dosage: 81 mg, UNK
  9. SIMVASTATIN [Concomitant]
     Dosage: UNK
  10. GLIPIZIDE [Concomitant]
     Dosage: UNK
  11. LISINOPRIL [Concomitant]
     Dosage: 40 mg, UNK
  12. AMLODIPINE [Concomitant]
     Dosage: 10 mg, UNK
  13. METOPROLOL - SLOW RELEASE [Concomitant]
     Dosage: 150 mg, UNK
  14. LANTUS [Concomitant]
     Dosage: UNK, 60 at HS
  15. NOVOLOG [Concomitant]
     Dosage: UNK, 15 TID before meals
  16. TAMSULOSIN [Concomitant]
     Dosage: UNK, at HS

REACTIONS (2)
  - Abdominal pain upper [Unknown]
  - Fatigue [Unknown]
